FAERS Safety Report 21627042 (Version 1)
Quarter: 2022Q4

REPORT INFORMATION
  Report Type: Spontaneous
  Country: CA (occurrence: CA)
  Receive Date: 20221122
  Receipt Date: 20221122
  Transmission Date: 20230113
  Serious: Yes (Death, Hospitalization, Other)
  Sender: FDA-Public Use
  Company Number: None

PATIENT
  Age: 76 Year
  Sex: Male

DRUGS (18)
  1. GEMCITABINE [Suspect]
     Active Substance: GEMCITABINE
     Indication: Pancreatic carcinoma metastatic
     Dosage: POWDER FOR SOLUTION
     Route: 042
  2. ACETAMINOPHEN [Concomitant]
     Active Substance: ACETAMINOPHEN
  3. CALCIUM [Concomitant]
     Active Substance: CALCIUM
  4. VITAMINS [Concomitant]
     Active Substance: VITAMINS
  5. ELIGARD [Concomitant]
     Active Substance: LEUPROLIDE ACETATE
     Dosage: POWDER FOR SUSPENSION SUSTAINED RELEASE
  6. EZETIMIBE [Concomitant]
     Active Substance: EZETIMIBE
  7. FERROUS SULFATE [Concomitant]
     Active Substance: FERROUS SULFATE
  8. HYDROMORPHONE HYDROCHLORIDE [Concomitant]
     Active Substance: HYDROMORPHONE HYDROCHLORIDE
  9. JANUMET [Concomitant]
     Active Substance: METFORMIN HYDROCHLORIDE\SITAGLIPTIN PHOSPHATE
     Route: 065
  10. POLYETHYLENE GLYCOL [Concomitant]
     Active Substance: POLYETHYLENE GLYCOL
     Dosage: POWDER FOR SOLUTION
     Route: 048
  11. METOCLOPRAMIDE [Concomitant]
     Active Substance: METOCLOPRAMIDE
  12. NITROGLYCERIN [Concomitant]
     Active Substance: NITROGLYCERIN
  13. PANTOPRAZOLE [Concomitant]
     Active Substance: PANTOPRAZOLE
     Dosage: POWDER FOR SOLUTION
     Route: 042
  14. PREGABALIN [Concomitant]
     Active Substance: PREGABALIN
  15. ASPIRIN [Concomitant]
     Active Substance: ASPIRIN
  16. SUCRALFATE [Concomitant]
     Active Substance: SUCRALFATE
     Route: 048
  17. URSODIOL [Concomitant]
     Active Substance: URSODIOL
  18. VITAMIN D [Concomitant]
     Active Substance: VITAMIN D NOS

REACTIONS (4)
  - Bacteraemia [Fatal]
  - Enterococcal infection [Fatal]
  - General physical health deterioration [Fatal]
  - Pancytopenia [Fatal]
